FAERS Safety Report 8514610-3 (Version None)
Quarter: 2012Q3

REPORT INFORMATION
  Report Type: 
  Country: None (occurrence: None)
  Receive Date: 20120717
  Receipt Date: 20120713
  Transmission Date: 20120928
  Serious: No
  Sender: FDA-Public Use
  Company Number: US-TEVA-348559USA

PATIENT
  Sex: Female
  Weight: 59.928 kg

DRUGS (2)
  1. ALPRAZOLAM [Concomitant]
     Indication: ANXIETY
     Route: 048
     Dates: start: 20120501
  2. PLAN B ONE-STEP [Suspect]
     Indication: POST COITAL CONTRACEPTION
     Dosage: 1.5 MILLIGRAM;
     Route: 048
     Dates: start: 20120611, end: 20120611

REACTIONS (3)
  - ABDOMINAL PAIN [None]
  - MENSTRUATION IRREGULAR [None]
  - MENSTRUATION DELAYED [None]
